FAERS Safety Report 8576358-9 (Version None)
Quarter: 2012Q3

REPORT INFORMATION
  Report Type: 
  Country: None (occurrence: None)
  Receive Date: 20120724
  Receipt Date: 20120709
  Transmission Date: 20120928
  Serious: Yes (Death, Hospitalization)
  Sender: FDA-Public Use
  Company Number: DSM-2012-00767

PATIENT
  Age: 56 Year
  Sex: Male

DRUGS (3)
  1. PELARGONIUM SIDOIDES (PELARGONIUM SIDOIDES) (PELARGONIUM SIDOIDES) [Suspect]
     Indication: RESPIRATORY TRACT INFECTION
     Dosage: 150 GTT (50 GTT, 3 IN 1 D), ORAL
     Route: 048
     Dates: start: 20110802, end: 20110813
  2. RASILEZ (ALISKIREN) [Concomitant]
  3. OLMESARTAN MEDOXOMIL [Suspect]
     Indication: HYPERTENSION
     Dosage: ORAL
     Route: 048

REACTIONS (7)
  - HEPATOSPLENOMEGALY [None]
  - HEPATIC LESION [None]
  - DRUG-INDUCED LIVER INJURY [None]
  - FUNGAL SEPSIS [None]
  - AUTOIMMUNE HEPATITIS [None]
  - ASPERGILLOSIS [None]
  - RESPIRATORY TRACT INFECTION [None]
